FAERS Safety Report 21640236 (Version 1)
Quarter: 2022Q4

REPORT INFORMATION
  Report Type: Spontaneous
  Country: US (occurrence: US)
  Receive Date: 20221124
  Receipt Date: 20221124
  Transmission Date: 20230113
  Serious: No
  Sender: FDA-Public Use
  Company Number: US-BoehringerIngelheim-2022-BI-204597

PATIENT
  Age: 62 Year
  Sex: Male

DRUGS (1)
  1. TRADJENTA [Suspect]
     Active Substance: LINAGLIPTIN
     Indication: Blood glucose increased
     Dates: start: 2020, end: 202203

REACTIONS (1)
  - Insulin resistance [Recovered/Resolved]

NARRATIVE: CASE EVENT DATE: 20200101
